FAERS Safety Report 5196483-2 (Version None)
Quarter: 2006Q4

REPORT INFORMATION
  Report Type: 
  Country: None (occurrence: None)
  Receive Date: 20061227
  Receipt Date: 20061213
  Transmission Date: 20070319
  Serious: Yes (Death, Hospitalization)
  Sender: FDA-Public Use
  Company Number: 2006EU003301

PATIENT
  Age: 36 Year
  Sex: Female

DRUGS (2)
  1. PROGRAF [Suspect]
     Indication: STEM CELL TRANSPLANT
     Dosage: UNK, UNKNOWN/D, UNK
  2. INFLIXIMAB(INFLIXIMAB) [Suspect]
     Indication: STEM CELL TRANSPLANT
     Dosage: UNK, UNKNOWN/D, UNK

REACTIONS (11)
  - ACUTE SINUSITIS [None]
  - CYSTITIS HAEMORRHAGIC [None]
  - CYTOMEGALOVIRUS INFECTION [None]
  - PATHOGEN RESISTANCE [None]
  - PNEUMONIA [None]
  - PNEUMONIA FUNGAL [None]
  - POST PROCEDURAL COMPLICATION [None]
  - PSEUDOMONAS INFECTION [None]
  - RENAL FAILURE ACUTE [None]
  - SEPTIC SHOCK [None]
  - STREPTOCOCCAL SEPSIS [None]
